FAERS Safety Report 7180125-0 (Version None)
Quarter: 2010Q4

REPORT INFORMATION
  Report Type: 
  Country: None (occurrence: None)
  Receive Date: 20101221
  Receipt Date: 20101206
  Transmission Date: 20110411
  Serious: Yes (Death, Other)
  Sender: FDA-Public Use
  Company Number: JP-GENENTECH-311176

PATIENT

DRUGS (9)
  1. RITUXIMAB [Suspect]
     Indication: LIVER TRANSPLANT
     Dosage: 375 MG/M2, UNK
     Route: 065
  2. MYCOPHENOLATE MOFETIL [Suspect]
     Indication: PROPHYLAXIS AGAINST TRANSPLANT REJECTION
     Dosage: UNK
     Route: 065
  3. IMMUNE GLOBULIN INTRAVENOUS (HUMAN) [Suspect]
     Indication: LIVER TRANSPLANT
     Dosage: UNK
     Route: 042
  4. TACROLIMUS [Suspect]
     Indication: LIVER TRANSPLANT
     Dosage: UNK
     Route: 065
  5. CYCLOSPORINE [Suspect]
     Indication: LIVER TRANSPLANT
     Dosage: UNK
     Route: 065
  6. METHYLPREDNISOLONE [Suspect]
     Indication: LIVER TRANSPLANT
     Dosage: UNK
     Route: 065
  7. PREDNISOLONE [Suspect]
     Indication: LIVER TRANSPLANT
     Dosage: 20 MG, UNK
     Route: 048
  8. PROSTAGLANDIN E1 [Concomitant]
     Indication: PRODUCT USED FOR UNKNOWN INDICATION
     Dosage: UNK
  9. NAFAMOSTAT MESILATE [Concomitant]
     Indication: PRODUCT USED FOR UNKNOWN INDICATION
     Dosage: UNK

REACTIONS (5)
  - ASPERGILLOSIS [None]
  - CYTOMEGALOVIRUS INFECTION [None]
  - PORTAL VEIN THROMBOSIS [None]
  - SEPSIS [None]
  - TRANSPLANT REJECTION [None]
